FAERS Safety Report 22277438 (Version 1)
Quarter: 2023Q2

REPORT INFORMATION
  Report Type: Spontaneous
  Country: US (occurrence: US)
  Receive Date: 20230503
  Receipt Date: 20230503
  Transmission Date: 20230721
  Serious: No
  Sender: FDA-Public Use
  Company Number: US-CIPLA LTD.-2023US01585

PATIENT

DRUGS (2)
  1. VILAZODONE [Suspect]
     Active Substance: VILAZODONE
     Indication: Product used for unknown indication
     Dosage: UNK
     Route: 065
  2. ATORVASTATIN [Suspect]
     Active Substance: ATORVASTATIN
     Indication: Product used for unknown indication
     Dosage: UNK
     Route: 065

REACTIONS (3)
  - Liver function test increased [Unknown]
  - Abdominal pain upper [Unknown]
  - Drug hypersensitivity [Unknown]
